FAERS Safety Report 8355411-9 (Version None)
Quarter: 2012Q2

REPORT INFORMATION
  Report Type: 
  Country: None (occurrence: None)
  Receive Date: 20120511
  Receipt Date: 20120509
  Transmission Date: 20120825
  Serious: Yes (Life-Threatening, Hospitalization)
  Sender: FDA-Public Use
  Company Number: DE-AMGEN-DEUNI2012025902

PATIENT
  Age: 81 Year
  Sex: Male
  Weight: 64 kg

DRUGS (9)
  1. PEGFILGRASTIM [Suspect]
     Indication: PROPHYLAXIS
     Dosage: 6 MG, UNK
     Route: 058
     Dates: start: 20120304
  2. CYCLOPHOSPHAMIDE [Concomitant]
     Indication: LYMPHOMA
  3. PREDNISOLONE [Concomitant]
     Indication: LYMPHOMA
  4. DOXORUBICIN HCL [Concomitant]
     Indication: LYMPHOMA
  5. VINCRISTINE [Concomitant]
     Indication: LYMPHOMA
  6. PANTOPRAZOLE [Concomitant]
     Dosage: 40 MG, QD
  7. BISOPROLOL FUMARATE [Concomitant]
     Dosage: 5 MG, QD
  8. RITUXIMAB [Concomitant]
     Indication: LYMPHOMA
  9. METHIMAZOLE [Concomitant]
     Dosage: 5 MG, QD

REACTIONS (2)
  - FEBRILE NEUTROPENIA [None]
  - WHITE BLOOD CELL COUNT [None]
